FAERS Safety Report 12851755 (Version 1)
Quarter: 2016Q4

REPORT INFORMATION
  Report Type: Spontaneous
  Country: US (occurrence: US)
  Receive Date: 20161014
  Receipt Date: 20161014
  Transmission Date: 20170207
  Serious: No
  Sender: FDA-Public Use
  Company Number: None

PATIENT
  Age: 49 Year
  Sex: Female
  Weight: 99 kg

DRUGS (1)
  1. LUPRON DEPOT [Suspect]
     Active Substance: LEUPROLIDE ACETATE
     Dosage: ?          OTHER FREQUENCY:MONTHLY;?
     Route: 030
     Dates: start: 20161013

REACTIONS (2)
  - Needle issue [None]
  - Injury associated with device [None]

NARRATIVE: CASE EVENT DATE: 20161013
